FAERS Safety Report 13770566 (Version 3)
Quarter: 2017Q3

REPORT INFORMATION
  Report Type: Spontaneous
  Country: PT (occurrence: PT)
  Receive Date: 20170719
  Receipt Date: 20170802
  Transmission Date: 20171127
  Serious: Yes (Hospitalization)
  Sender: FDA-Public Use
  Company Number: PT-BAYER-2017-131126

PATIENT
  Age: 79 Year
  Sex: Female

DRUGS (1)
  1. ACETYLSALICYLIC ACID (} 100 MG) [Suspect]
     Active Substance: ASPIRIN

REACTIONS (3)
  - Pulmonary artery dilatation [None]
  - Pulmonary infarction [None]
  - Pulmonary embolism [None]
